FAERS Safety Report 25076952 (Version 2)
Quarter: 2025Q1

REPORT INFORMATION
  Report Type: Spontaneous
  Country: US (occurrence: US)
  Receive Date: 20250314
  Receipt Date: 20250326
  Transmission Date: 20250409
  Serious: No
  Sender: JOHNSON AND JOHNSON
  Company Number: US-JNJFOC-20250270291

PATIENT
  Age: 12 Year
  Sex: Female

DRUGS (2)
  1. STELARA [Suspect]
     Active Substance: USTEKINUMAB
     Indication: Crohn^s disease
     Route: 058
     Dates: start: 20250218
  2. STELARA [Suspect]
     Active Substance: USTEKINUMAB
     Indication: Irritable bowel syndrome

REACTIONS (8)
  - Needle issue [Unknown]
  - Mood altered [Unknown]
  - Screaming [Unknown]
  - Product dose omission issue [Unknown]
  - Pain [Unknown]
  - Nerve compression [Unknown]
  - Device issue [Unknown]
  - Inappropriate schedule of product administration [Unknown]

NARRATIVE: CASE EVENT DATE: 20250218
